FAERS Safety Report 14415036 (Version 1)
Quarter: 2018Q1

REPORT INFORMATION
  Report Type: Spontaneous
  Country: US (occurrence: US)
  Receive Date: 20180118
  Receipt Date: 20180118
  Transmission Date: 20180509
  Serious: Yes (Life-Threatening, Hospitalization)
  Sender: FDA-Public Use
  Company Number: None

PATIENT
  Age: 72 Year
  Sex: Male
  Weight: 110.36 kg

DRUGS (1)
  1. CLOPIDOGREL [Suspect]
     Active Substance: CLOPIDOGREL BISULFATE
     Indication: CEREBROVASCULAR ACCIDENT PROPHYLAXIS
     Route: 048
     Dates: start: 20171009, end: 20171114

REACTIONS (8)
  - Headache [None]
  - Aphasia [None]
  - Vision blurred [None]
  - Hypertension [None]
  - Facial paralysis [None]
  - Cerebral haemorrhage [None]
  - Haemorrhage intracranial [None]
  - Eye pain [None]

NARRATIVE: CASE EVENT DATE: 20171114
